FAERS Safety Report 8915580 (Version 2)
Quarter: 2012Q4

REPORT INFORMATION
  Report Type: Report from Study
  Country: US (occurrence: US)
  Receive Date: 20121119
  Receipt Date: 20121121
  Transmission Date: 20130627
  Serious: Yes (Hospitalization)
  Sender: FDA-Public Use
  Company Number: US-JNJFOC-20121107647

PATIENT
  Age: 17 Year
  Sex: Male
  Weight: 60 kg

DRUGS (12)
  1. REMICADE [Suspect]
     Indication: INFLAMMATORY BOWEL DISEASE
     Route: 042
     Dates: start: 20120221
  2. METHOTREXATE [Concomitant]
  3. VICODIN [Concomitant]
  4. CEPHALEXIN [Concomitant]
  5. FLOMAX [Concomitant]
  6. FOLIC ACID [Concomitant]
  7. OXYBUTYNIN [Concomitant]
  8. DIATRIZOATE [Concomitant]
  9. IOVERSOL [Concomitant]
  10. ISRADIPINE [Concomitant]
  11. MORPHINE [Concomitant]
  12. ALL OTHER THERAPEUTIC DRUGS [Concomitant]

REACTIONS (1)
  - Alcohol poisoning [Recovered/Resolved]
